FAERS Safety Report 25806938 (Version 1)
Quarter: 2025Q3

REPORT INFORMATION
  Report Type: Report from Study
  Country: US (occurrence: US)
  Receive Date: 20250916
  Receipt Date: 20250916
  Transmission Date: 20251020
  Serious: Yes (Other)
  Sender: ABBVIE
  Company Number: US-ABBVIE-6314105

PATIENT
  Age: 54 Year
  Sex: Female

DRUGS (5)
  1. SKYRIZI [Suspect]
     Active Substance: RISANKIZUMAB-RZAA
     Indication: Crohn^s disease
     Route: 058
     Dates: start: 202508, end: 202508
  2. SKYRIZI [Suspect]
     Active Substance: RISANKIZUMAB-RZAA
     Dosage: STRENGTH-360 MG, EVERY 8 WEEKS
     Route: 058
     Dates: start: 2025
  3. SKYRIZI [Suspect]
     Active Substance: RISANKIZUMAB-RZAA
     Indication: Crohn^s disease
     Route: 042
     Dates: start: 20250314, end: 20250314
  4. SKYRIZI [Suspect]
     Active Substance: RISANKIZUMAB-RZAA
     Indication: Crohn^s disease
     Route: 042
     Dates: start: 20250411, end: 20250411
  5. SKYRIZI [Suspect]
     Active Substance: RISANKIZUMAB-RZAA
     Indication: Crohn^s disease
     Route: 042
     Dates: start: 2025, end: 2025

REACTIONS (11)
  - Intestinal obstruction [Unknown]
  - Decreased appetite [Unknown]
  - Pain [Unknown]
  - Nausea [Recovered/Resolved]
  - Nausea [Unknown]
  - Fatigue [Unknown]
  - Frequent bowel movements [Unknown]
  - Flatulence [Unknown]
  - Abdominal distension [Unknown]
  - Herpes zoster [Unknown]
  - Therapeutic product effect decreased [Unknown]

NARRATIVE: CASE EVENT DATE: 20250101
